FAERS Safety Report 5342074-X (Version None)
Quarter: 2007Q2

REPORT INFORMATION
  Report Type: 
  Country: None (occurrence: None)
  Receive Date: 20070409
  Receipt Date: 20060720
  Transmission Date: 20071010
  Serious: Yes (Hospitalization)
  Sender: FDA-Public Use
  Company Number: 2006BH012008

PATIENT
  Age: 70 Year
  Sex: Male
  Weight: 69.5 kg

DRUGS (7)
  1. ROBINUL [Suspect]
     Indication: SALIVARY HYPERSECRETION
     Dosage: 0.2 MG;IV
     Route: 042
     Dates: start: 20050607, end: 20050607
  2. RHIGF1/PLACEBO [Suspect]
     Indication: AMYOTROPHIC LATERAL SCLEROSIS
     Dosage: 1.74 MG;2X A DAY;SC
     Route: 058
     Dates: start: 20041210, end: 20050606
  3. MULTIVITAMIN [Concomitant]
  4. ASPIRIN [Concomitant]
  5. EFFEXOR [Concomitant]
  6. DULCOLAX [Concomitant]
  7. FLOMAX [Concomitant]

REACTIONS (1)
  - ANAPHYLACTOID REACTION [None]
